FAERS Safety Report 20580211 (Version 1)
Quarter: 2022Q1

REPORT INFORMATION
  Report Type: Spontaneous
  Country: US (occurrence: US)
  Receive Date: 20220310
  Receipt Date: 20220310
  Transmission Date: 20220424
  Serious: No
  Sender: FDA-Public Use
  Company Number: US-HORIZON THERAPEUTICS-HZN-2021-007307

PATIENT
  Sex: Female

DRUGS (8)
  1. DUEXIS [Suspect]
     Active Substance: FAMOTIDINE\IBUPROFEN
     Indication: Osteoarthritis
     Dosage: 1 DOSAGE FORM, TID
     Route: 065
  2. DUEXIS [Suspect]
     Active Substance: FAMOTIDINE\IBUPROFEN
     Dosage: 26.6 MG, TID
     Route: 048
  3. PENNSAID [Suspect]
     Active Substance: DICLOFENAC SODIUM
     Indication: Osteoarthritis
     Dosage: 2 PUFF, BID
     Route: 065
  4. PENNSAID [Suspect]
     Active Substance: DICLOFENAC SODIUM
     Dosage: UNK, 1 PACKET TOPICALLY TO KNEES BID.
     Route: 061
  5. MAGNESIUM [Concomitant]
     Active Substance: MAGNESIUM
     Dosage: 400 MG, TID
     Route: 065
  6. PAROXETINE [Concomitant]
     Active Substance: PAROXETINE
     Indication: Abdominal pain
     Dosage: 37.5 MG
     Route: 065
  7. PAROXETINE [Concomitant]
     Active Substance: PAROXETINE
     Indication: Gastrooesophageal reflux disease
  8. XARELTO [Concomitant]
     Active Substance: RIVAROXABAN
     Dosage: UNK

REACTIONS (2)
  - Arthralgia [Unknown]
  - Intentional product misuse [Unknown]
